FAERS Safety Report 11135797 (Version 1)
Quarter: 2015Q2

REPORT INFORMATION
  Report Type: Spontaneous
  Country: JP (occurrence: JP)
  Receive Date: 20150526
  Receipt Date: 20150526
  Transmission Date: 20150821
  Serious: Yes (Other)
  Sender: FDA-Public Use
  Company Number: JP-BAYER-2015-244023

PATIENT
  Age: 32 Year
  Sex: Female

DRUGS (4)
  1. ACETYLSALICYLIC ACID({=100 MG) [Suspect]
     Active Substance: ASPIRIN
     Indication: PROPHYLAXIS
     Dosage: UNK
     Route: 048
  2. ANTITHROMBIN III [Concomitant]
     Active Substance: ANTITHROMBIN III HUMAN
     Indication: PROPHYLAXIS
     Dosage: UNK
  3. UNFRACTIONATED HEPARIN [Concomitant]
     Active Substance: HEPARIN SODIUM
     Indication: PROPHYLAXIS
     Dosage: UNK
  4. DANAPAROID SODIUM [Concomitant]
     Active Substance: DANAPAROID SODIUM
     Dosage: UNK

REACTIONS (2)
  - Maternal exposure during pregnancy [None]
  - Abortion spontaneous [Recovered/Resolved]
